FAERS Safety Report 19587482 (Version 2)
Quarter: 2021Q3

REPORT INFORMATION
  Report Type: Report from Study
  Country: DE (occurrence: DE)
  Receive Date: 20210721
  Receipt Date: 20210727
  Transmission Date: 20211014
  Serious: Yes (Death)
  Sender: FDA-Public Use
  Company Number: DE-PFIZER INC-2021868871

PATIENT

DRUGS (3)
  1. CARBOPLAT [Suspect]
     Active Substance: CARBOPLATIN
     Indication: BRAIN NEOPLASM MALIGNANT
     Dosage: 500 MG/M2/D, CVI 24 H, DAY?8 TO DAY?5
     Route: 042
  2. THIOTEPA. [Suspect]
     Active Substance: THIOTEPA
     Indication: BRAIN NEOPLASM MALIGNANT
     Dosage: 400?600 MG/M2/D, IV 6 H, DAY?9
     Route: 042
  3. VEPESID [Suspect]
     Active Substance: ETOPOSIDE
     Indication: BRAIN NEOPLASM MALIGNANT
     Dosage: 500 MG/M2/D, CVI 24 H, DAY?8 TO DAY?5
     Route: 042

REACTIONS (1)
  - Aspergillus infection [Fatal]
